FAERS Safety Report 7861313-4 (Version None)
Quarter: 2011Q4

REPORT INFORMATION
  Report Type: 
  Country: None (occurrence: None)
  Receive Date: 20111027
  Receipt Date: 20111017
  Transmission Date: 20120403
  Serious: No
  Sender: FDA-Public Use
  Company Number: US-PFIZER INC-2011248595

PATIENT
  Sex: Female
  Weight: 61.224 kg

DRUGS (3)
  1. FLECTOR [Suspect]
     Dosage: UNK
     Route: 062
     Dates: start: 20110101
  2. DEXILANT [Concomitant]
     Indication: GASTROOESOPHAGEAL REFLUX DISEASE
     Dosage: 60 MG, DAILY
     Route: 048
  3. SIMVASTATIN [Concomitant]
     Indication: BLOOD CHOLESTEROL INCREASED
     Dosage: 20 MG, DAILY
     Route: 048

REACTIONS (1)
  - DRUG INEFFECTIVE [None]
